FAERS Safety Report 4333864-0 (Version None)
Quarter: 2004Q2

REPORT INFORMATION
  Report Type: 
  Country: None (occurrence: None)
  Receive Date: 20040402
  Receipt Date: 20040220
  Transmission Date: 20050107
  Serious: Yes (Other)
  Sender: FDA-Public Use
  Company Number: SDP22004

PATIENT
  Age: 33 Year
  Sex: Female

DRUGS (1)
  1. TRETINOIN CREAM USP 0.05%/ SPEAR PHARMACEUTICAL [Suspect]
     Indication: ACNE
     Dosage: 1X DAY TOPICAL
     Route: 061
     Dates: start: 20031209, end: 20031211

REACTIONS (6)
  - BASAL CELL CARCINOMA [None]
  - ERYTHEMA [None]
  - HAEMORRHAGE [None]
  - PAIN [None]
  - SCAR [None]
  - SKIN DESQUAMATION [None]
